FAERS Safety Report 5487022-7 (Version None)
Quarter: 2007Q4

REPORT INFORMATION
  Report Type: 
  Country: None (occurrence: None)
  Receive Date: 20071016
  Receipt Date: 20071003
  Transmission Date: 20080405
  Serious: Yes (Other)
  Sender: FDA-Public Use
  Company Number: GB-RANBAXY-2007RR-10509

PATIENT

DRUGS (3)
  1. CHLORPROMAZINE 100MG TABLETS BP [Suspect]
     Indication: PSYCHOTIC DISORDER
     Dosage: 300 MG, QD
     Route: 048
     Dates: start: 20060403, end: 20060718
  2. CLOZARIL [Suspect]
     Indication: SCHIZOPHRENIA
     Dosage: 75 MG, QD
     Route: 048
     Dates: start: 20060713
  3. RISPERIDONE 4MG FILM-COATED TABLETS [Suspect]
     Indication: PSYCHOTIC DISORDER
     Dosage: 4 MG, BID
     Route: 048
     Dates: start: 20060428, end: 20060810

REACTIONS (3)
  - DRUG INTERACTION [None]
  - ORTHOSTATIC HYPOTENSION [None]
  - TACHYCARDIA [None]
